FAERS Safety Report 9438396 (Version 1)
Quarter: 2013Q3

REPORT INFORMATION
  Report Type: Spontaneous
  Country: US (occurrence: US)
  Receive Date: 20130802
  Receipt Date: 20130802
  Transmission Date: 20140515
  Serious: Yes (Other)
  Sender: FDA-Public Use
  Company Number: US-ASTRAZENECA-2013SE56932

PATIENT
  Age: 76 Year
  Sex: Female
  Weight: 72.6 kg

DRUGS (16)
  1. ATENOLOL [Suspect]
     Indication: BLOOD PRESSURE ABNORMAL
     Route: 048
     Dates: end: 20130610
  2. NEXIUM [Suspect]
     Indication: GASTROOESOPHAGEAL REFLUX DISEASE
     Route: 048
     Dates: end: 2011
  3. AMLODIPINE BESYLATE [Concomitant]
     Indication: BLOOD PRESSURE ABNORMAL
     Route: 048
  4. CYMBALTA [Concomitant]
     Indication: ANXIETY
     Route: 048
     Dates: start: 2012
  5. CYMBALTA [Concomitant]
     Indication: DEPRESSION
     Route: 048
     Dates: start: 2012
  6. ALLOPURINOL [Concomitant]
     Indication: NEPHROLITHIASIS
     Route: 048
     Dates: start: 2002, end: 201303
  7. METHOTREXATE [Concomitant]
     Indication: PSORIASIS
     Dosage: 2.5MG/4 TABLETS WEEK
     Route: 048
     Dates: start: 201303, end: 201307
  8. ZOLTIDEM [Concomitant]
     Indication: SLEEP DISORDER
     Route: 048
     Dates: start: 2008
  9. CARAFATE [Concomitant]
     Indication: GASTRIC DISORDER
     Route: 048
     Dates: start: 201212
  10. RECLAST (ZOLEDRONE ACID) [Concomitant]
     Indication: BONE DENSITY ABNORMAL
     Dosage: 5MG/100ML INFUSION YEAR
     Route: 048
     Dates: start: 20121112
  11. CALCIUM/MINERALS/VITAMIN D [Concomitant]
     Indication: BONE DISORDER
     Route: 048
  12. ASPIRIN [Concomitant]
     Indication: CARDIAC DISORDER
     Route: 048
     Dates: start: 201305
  13. ALEVE [Concomitant]
     Indication: PAIN
     Route: 048
  14. I-CAPS [Concomitant]
     Indication: EYE DISORDER
     Route: 048
  15. REFRESH [Concomitant]
     Indication: DRY EYE
     Dosage: BID
     Route: 061
  16. LACRI-LUBE [Concomitant]
     Indication: EYE IRRITATION
     Dosage: HS
     Route: 061

REACTIONS (11)
  - Cataract [Unknown]
  - Mass [Unknown]
  - Weight decreased [Unknown]
  - Fungal infection [Recovered/Resolved]
  - Coeliac disease [Not Recovered/Not Resolved]
  - Rheumatoid arthritis [Unknown]
  - Pain [Not Recovered/Not Resolved]
  - Cardiac murmur [Unknown]
  - Osteoporosis [Unknown]
  - Fibromyalgia [Unknown]
  - Nephrolithiasis [Unknown]
